FAERS Safety Report 7744250-5 (Version None)
Quarter: 2011Q3

REPORT INFORMATION
  Report Type: 
  Country: None (occurrence: None)
  Receive Date: 20110912
  Receipt Date: 20110908
  Transmission Date: 20111222
  Serious: Yes (Death, Life-Threatening, Other)
  Sender: FDA-Public Use
  Company Number: PHHY2011US79765

PATIENT
  Age: 63 Year
  Sex: Female

DRUGS (1)
  1. ENOXAPARIN [Suspect]
     Indication: THROMBOSIS

REACTIONS (7)
  - PERONEAL NERVE PALSY [None]
  - RESPIRATORY DISORDER [None]
  - VAGINAL HAEMORRHAGE [None]
  - DEATH [None]
  - FEELING ABNORMAL [None]
  - MUSCLE HAEMORRHAGE [None]
  - PARAESTHESIA [None]
